FAERS Safety Report 5355683-9 (Version None)
Quarter: 2007Q2

REPORT INFORMATION
  Report Type: 
  Country: None (occurrence: None)
  Receive Date: 20070613
  Receipt Date: 20070611
  Transmission Date: 20071010
  Serious: Yes (Hospitalization)
  Sender: FDA-Public Use
  Company Number: DE-BAYER-200710233BVD

PATIENT
  Age: 40 Year
  Sex: Male
  Weight: 58 kg

DRUGS (15)
  1. SORAFENIB [Suspect]
     Indication: RENAL CELL CARCINOMA STAGE UNSPECIFIED
     Route: 048
     Dates: start: 20060706
  2. ALLOPURINOL [Concomitant]
     Indication: HYPERURICAEMIA
     Route: 065
     Dates: start: 20060101
  3. PANTOZOL [Concomitant]
     Indication: PAIN PROPHYLAXIS
     Route: 065
     Dates: start: 20060101
  4. VIGANTOLETTEN [Concomitant]
     Indication: VITAMIN SUPPLEMENTATION
     Route: 065
     Dates: start: 20060101
  5. TRAMADOLOR [Concomitant]
     Indication: PAIN
     Route: 065
     Dates: start: 20060101
  6. INSULIN NOVORAPID [Concomitant]
     Indication: DIABETES MELLITUS
     Route: 065
     Dates: start: 20060101, end: 20060701
  7. METOCLOPRAMIDE [Concomitant]
     Indication: VOMITING
     Route: 048
     Dates: start: 20060101
  8. ECURAL [Concomitant]
     Indication: PHARYNGOLARYNGEAL PAIN
     Route: 065
     Dates: start: 20060721
  9. HEPATHROMB [Concomitant]
     Indication: RASH
     Route: 065
     Dates: start: 20060808
  10. ZOMETA [Concomitant]
     Indication: METASTASES TO BONE
     Route: 065
     Dates: start: 20060905
  11. POSTERISAN [Concomitant]
     Indication: HAEMORRHOIDS
     Route: 054
     Dates: start: 20050905
  12. POSTERISAN [Concomitant]
     Route: 065
     Dates: start: 20050905
  13. HYDRODEXAN [Concomitant]
     Indication: HYPERKERATOSIS
     Route: 065
     Dates: start: 20061001
  14. REKAWAN [Concomitant]
     Indication: HYPOKALAEMIA
     Route: 065
     Dates: start: 20061211
  15. TROMETAMOL [Concomitant]
     Indication: PAIN

REACTIONS (1)
  - GENERAL PHYSICAL HEALTH DETERIORATION [None]
